FAERS Safety Report 20799130 (Version 2)
Quarter: 2022Q2

REPORT INFORMATION
  Report Type: Spontaneous
  Country: US (occurrence: US)
  Receive Date: 20220508
  Receipt Date: 20220513
  Transmission Date: 20220721
  Serious: No
  Sender: FDA-Public Use
  Company Number: US-SA-SAC20220505000089

PATIENT
  Age: 33 Year
  Sex: Female

DRUGS (8)
  1. DUPIXENT [Suspect]
     Active Substance: DUPILUMAB
     Indication: Dermatitis atopic
     Dosage: 1 DF, QOW
     Route: 058
     Dates: start: 20220222
  2. DULOXETINE [Concomitant]
     Active Substance: DULOXETINE
  3. FLUTICASONE [Concomitant]
     Active Substance: FLUTICASONE
  4. OMEPRAZOLE [Concomitant]
     Active Substance: OMEPRAZOLE
  5. ONDANSETRON [Concomitant]
     Active Substance: ONDANSETRON
  6. PREDNISONE [Concomitant]
     Active Substance: PREDNISONE
  7. DULOXETINE [Concomitant]
     Active Substance: DULOXETINE
  8. HYDROCHLOROTHIAZIDE [Concomitant]
     Active Substance: HYDROCHLOROTHIAZIDE

REACTIONS (1)
  - Injection site pain [Not Recovered/Not Resolved]

NARRATIVE: CASE EVENT DATE: 20220101
